FAERS Safety Report 8772333 (Version 1)
Quarter: 2012Q4

REPORT INFORMATION
  Report Type: 
  Country: US (occurrence: US)
  Receive Date: 20120906
  Receipt Date: 20120906
  Transmission Date: 20130627
  Serious: Yes (Other)
  Sender: FDA-Public Use
  Company Number: US-MERCK-1209USA001143

PATIENT

DRUGS (5)
  1. GLIPIZIDE [Concomitant]
  2. METFORMIN [Concomitant]
  3. SAPHRIS [Suspect]
     Indication: BIPOLAR DISORDER
     Dosage: 10 mg, hs
     Route: 060
     Dates: start: 20120517, end: 20120828
  4. LOVASTATIN [Concomitant]
  5. LISINOPRIL [Concomitant]

REACTIONS (1)
  - Rhabdomyolysis [Unknown]
